FAERS Safety Report 6467910-5 (Version None)
Quarter: 2009Q4

REPORT INFORMATION
  Report Type: 
  Country: None (occurrence: None)
  Receive Date: 20091127
  Receipt Date: 20091119
  Transmission Date: 20100525
  Serious: Yes (Hospitalization)
  Sender: FDA-Public Use
  Company Number: 2008SP011199

PATIENT
  Age: 78 Year
  Sex: Male
  Weight: 79.2 kg

DRUGS (8)
  1. PEG-INTRON [Suspect]
     Indication: METASTATIC MALIGNANT MELANOMA
     Dosage: 238 MCG; SC, 238 MCG;SC
     Route: 058
     Dates: start: 20080527, end: 20080527
  2. PEG-INTRON [Suspect]
     Indication: METASTATIC MALIGNANT MELANOMA
     Dosage: 238 MCG; SC, 238 MCG;SC
     Route: 058
     Dates: start: 20080527, end: 20080602
  3. SORAFENIB (SORAFENIB) [Suspect]
     Indication: METASTATIC MALIGNANT MELANOMA
     Dosage: 400 MG;QD;PO
     Route: 048
     Dates: start: 20080527, end: 20080607
  4. UBRETID [Concomitant]
  5. TAMSULOSIN [Concomitant]
  6. CEFUROXIME [Concomitant]
  7. HEPARIN [Concomitant]
  8. KONAKION [Concomitant]

REACTIONS (2)
  - BLOOD URINE PRESENT [None]
  - THROMBOSIS [None]
